FAERS Safety Report 8871747 (Version 1)
Quarter: 2012Q4

REPORT INFORMATION
  Report Type: 
  Country: US (occurrence: US)
  Receive Date: 20121026
  Receipt Date: 20121026
  Transmission Date: 20130627
  Serious: No
  Sender: FDA-Public Use
  Company Number: US-AMGEN-USASP2012048679

PATIENT
  Sex: Female

DRUGS (10)
  1. ENBREL [Suspect]
     Indication: PRODUCT USED FOR UNKNOWN INDICATION
     Dosage: 25 mg, 2 times/wk
     Route: 058
  2. LASIX                              /00032601/ [Concomitant]
     Dosage: 20 mg, UNK
  3. METHOTREXATE [Concomitant]
     Dosage: 2.5 mg, UNK
  4. VICODIN [Concomitant]
     Dosage: (5-500 mg)
  5. TRAMADOL HCL [Concomitant]
     Dosage: 50 mg, UNK
  6. FOLIC ACID [Concomitant]
     Dosage: 1 mg, UNK
  7. PRILOSEC                           /00661201/ [Concomitant]
     Dosage: 20 mg, UNK
  8. IRON [Concomitant]
     Dosage: 325 mg, UNK
  9. TYLENOL ARTHRITIS [Concomitant]
     Dosage: 650 mg, UNK
  10. TYLENOL ARTHRITIS [Concomitant]

REACTIONS (1)
  - Ligament rupture [Unknown]
